FAERS Safety Report 9240153 (Version 1)
Quarter: 2013Q2

REPORT INFORMATION
  Report Type: Spontaneous
  Country: US (occurrence: US)
  Receive Date: 20130418
  Receipt Date: 20130418
  Transmission Date: 20140414
  Serious: No
  Sender: FDA-Public Use
  Company Number: US-PFIZER INC-2013118493

PATIENT
  Sex: Male

DRUGS (2)
  1. NADOLOL [Suspect]
     Indication: TREMOR
     Dosage: 40 MG, 1X/DAY
  2. NADOLOL [Suspect]
     Indication: BLOOD PRESSURE ABNORMAL

REACTIONS (2)
  - Off label use [Unknown]
  - Drug ineffective [Unknown]
